FAERS Safety Report 16208643 (Version 1)
Quarter: 2019Q2

REPORT INFORMATION
  Report Type: Spontaneous
  Country: FR (occurrence: FR)
  Receive Date: 20190417
  Receipt Date: 20190417
  Transmission Date: 20190711
  Serious: Yes (Death, Other)
  Sender: FDA-Public Use
  Company Number: FR-BAYER-2019-075127

PATIENT
  Age: 64 Year
  Sex: Male

DRUGS (3)
  1. NEXAVAR [Suspect]
     Active Substance: SORAFENIB
     Indication: HEPATOCELLULAR CARCINOMA
     Dosage: UNK
     Dates: start: 201704, end: 2017
  2. NEXAVAR [Suspect]
     Active Substance: SORAFENIB
     Indication: HEPATOCELLULAR CARCINOMA
     Dosage: UNK
     Dates: start: 201804, end: 2018
  3. REGORAFENIB. [Suspect]
     Active Substance: REGORAFENIB
     Dosage: UNK
     Dates: start: 2018

REACTIONS (4)
  - Death [Fatal]
  - Hepatic mass [None]
  - Hepatocellular carcinoma [None]
  - Nodule [None]

NARRATIVE: CASE EVENT DATE: 201712
